FAERS Safety Report 13609252 (Version 1)
Quarter: 2017Q2

REPORT INFORMATION
  Report Type: Spontaneous
  Country: CH (occurrence: CH)
  Receive Date: 20170602
  Receipt Date: 20170602
  Transmission Date: 20170830
  Serious: Yes (Hospitalization)
  Sender: FDA-Public Use
  Company Number: CH-PFIZER INC-HQWYE364702DEC03

PATIENT
  Age: 68 Year
  Sex: Female
  Weight: 50 kg

DRUGS (11)
  1. TEICOPLANIN [Interacting]
     Active Substance: TEICOPLANIN
     Dosage: 400 MG, 1X/DAY
     Route: 042
     Dates: start: 20031102, end: 20031104
  2. TIENAM [Concomitant]
     Active Substance: CILASTATIN SODIUM\IMIPENEM
     Dosage: 5000 MG, 2X/DAY
     Route: 042
     Dates: start: 20031103, end: 20031105
  3. PREDNISONE. [Concomitant]
     Active Substance: PREDNISONE
     Dosage: 60 MG, DAILY
     Route: 048
     Dates: start: 20031015
  4. TEICOPLANIN [Interacting]
     Active Substance: TEICOPLANIN
     Indication: LUNG INFECTION
     Dosage: 400 MG, 2X/DAY
     Route: 042
     Dates: start: 20031031, end: 20031101
  5. DIGOXINE [Concomitant]
     Active Substance: DIGOXIN
     Dosage: 0.25 MG, DAILY
     Route: 048
  6. NEXIUM [Concomitant]
     Active Substance: ESOMEPRAZOLE MAGNESIUM
     Dosage: 40 MG, DAILY
     Route: 048
  7. VINCRISTINE [Concomitant]
     Active Substance: VINCRISTINE
     Dosage: 4 MG, TOTAL DOSE
     Route: 042
     Dates: start: 20031015, end: 20031103
  8. DOXORUBICIN [Concomitant]
     Active Substance: DOXORUBICIN
     Dosage: 150 MG, TOTAL DOSE
     Route: 042
     Dates: start: 20031015, end: 20031103
  9. METHOTREXATE SODIUM. [Suspect]
     Active Substance: METHOTREXATE SODIUM
     Indication: ANAPLASTIC LARGE CELL LYMPHOMA T- AND NULL-CELL TYPES
     Dosage: 4410 MG, CYCLIC
     Route: 042
     Dates: start: 20031031, end: 20031103
  10. CYCLOPHOSPHAMIDE. [Concomitant]
     Active Substance: CYCLOPHOSPHAMIDE
     Dosage: 2200 MG, TOTAL DOSE
     Route: 042
     Dates: start: 20031015, end: 20031103
  11. FRAXIPARIN /00889603/ [Concomitant]
     Active Substance: HEPARIN CALCIUM
     Dosage: 0.6 ML, UNK
     Route: 042
     Dates: start: 20031103

REACTIONS (3)
  - Drug level increased [Recovered/Resolved]
  - Drug interaction [Not Recovered/Not Resolved]
  - Acute kidney injury [Not Recovered/Not Resolved]

NARRATIVE: CASE EVENT DATE: 20031105
